FAERS Safety Report 14113436 (Version 1)
Quarter: 2017Q4

REPORT INFORMATION
  Report Type: Spontaneous
  Country: US (occurrence: US)
  Receive Date: 20171022
  Receipt Date: 20171022
  Transmission Date: 20180321
  Serious: Yes (Hospitalization)
  Sender: FDA-Public Use
  Company Number: None

PATIENT
  Age: 21 Year
  Sex: Female
  Weight: 67.5 kg

DRUGS (8)
  1. RITUAL WOMEN^S MULTIVITAMIN [Concomitant]
  2. ADDERALL [Concomitant]
     Active Substance: AMPHETAMINE ASPARTATE\AMPHETAMINE SULFATE\DEXTROAMPHETAMINE SACCHARATE\DEXTROAMPHETAMINE SULFATE
  3. ESCITALOPRAM [Concomitant]
     Active Substance: ESCITALOPRAM OXALATE
  4. L-THEANINE [Concomitant]
     Active Substance: DIETARY SUPPLEMENT
  5. PRAZOSIN. [Suspect]
     Active Substance: PRAZOSIN
     Indication: POST-TRAUMATIC STRESS DISORDER
     Dosage: ?          QUANTITY:1 CAPSULE(S);?
     Route: 048
     Dates: start: 20171020, end: 20171020
  6. HYOSCYAMINE. [Concomitant]
     Active Substance: HYOSCYAMINE
  7. COQ10 [Concomitant]
     Active Substance: UBIDECARENONE
  8. MELATONIN [Concomitant]
     Active Substance: MELATONIN

REACTIONS (6)
  - Blood pressure decreased [None]
  - Dizziness [None]
  - Heart rate increased [None]
  - Hyperventilation [None]
  - Vision blurred [None]
  - Dizziness postural [None]

NARRATIVE: CASE EVENT DATE: 20171020
